FAERS Safety Report 25042014 (Version 1)
Quarter: 2025Q1

REPORT INFORMATION
  Report Type: Spontaneous
  Country: DE (occurrence: DE)
  Receive Date: 20250305
  Receipt Date: 20250305
  Transmission Date: 20250409
  Serious: Yes (Other)
  Sender: GILEAD
  Company Number: DE-GILEAD-2025-0705038

PATIENT
  Age: 47 Year
  Sex: Male

DRUGS (4)
  1. TRUVADA [Suspect]
     Active Substance: EMTRICITABINE\TENOFOVIR DISOPROXIL FUMARATE
     Indication: HIV infection
     Route: 065
  2. RALTEGRAVIR [Concomitant]
     Active Substance: RALTEGRAVIR
  3. DARUNAVIR [Concomitant]
     Active Substance: DARUNAVIR
  4. RITONAVIR [Concomitant]
     Active Substance: RITONAVIR

REACTIONS (5)
  - Pulmonary tuberculosis [Unknown]
  - Immunodeficiency [Unknown]
  - Gastrointestinal disorder [Unknown]
  - Genotype drug resistance test positive [Unknown]
  - Treatment noncompliance [Unknown]

NARRATIVE: CASE EVENT DATE: 20220101
